FAERS Safety Report 19644504 (Version 2)
Quarter: 2021Q3

REPORT INFORMATION
  Report Type: Other
  Country: US (occurrence: US)
  Receive Date: 20210801
  Receipt Date: 20210805
  Transmission Date: 20211014
  Serious: Yes (Death)
  Sender: FDA-Public Use
  Company Number: US-ROCHE-2874705

PATIENT
  Age: 56 Year
  Sex: Female

DRUGS (13)
  1. OCREVUS [Suspect]
     Active Substance: OCRELIZUMAB
     Indication: RELAPSING MULTIPLE SCLEROSIS
     Route: 065
  2. CYMBALTA [Concomitant]
     Active Substance: DULOXETINE HYDROCHLORIDE
     Dosage: EVERY DAY
     Route: 048
  3. VITAMIN D3 [Concomitant]
     Active Substance: CHOLECALCIFEROL
     Route: 048
  4. GABAPENTIN. [Concomitant]
     Active Substance: GABAPENTIN
     Route: 048
  5. LYRICA [Concomitant]
     Active Substance: PREGABALIN
     Route: 048
  6. SHINGRIX [Concomitant]
     Active Substance: RECOMBINANT VARICELLA ZOSTER VIRUS (VZV) GLYCOPROTEIN E
     Route: 030
  7. NYSTOP [Concomitant]
     Active Substance: NYSTATIN
     Dosage: 1000000 UNITS/GRAM 2 TIMES TO AFFECTED AREA
     Route: 061
  8. NYSTATIN. [Concomitant]
     Active Substance: NYSTATIN
     Dosage: 1000000 UNITS/GRAM 3 TIMES TO AFFECTED AREA
     Route: 061
  9. MELATONIN [Concomitant]
     Active Substance: MELATONIN
  10. COLACE [Concomitant]
     Active Substance: DOCUSATE SODIUM
     Dosage: EVERY DAY AT BEDTIME AS NEEDED
     Route: 048
  11. BACLOFEN. [Concomitant]
     Active Substance: BACLOFEN
  12. VITAMIN C [Concomitant]
     Active Substance: ASCORBIC ACID
  13. FERROUS SULFATE. [Concomitant]
     Active Substance: FERROUS SULFATE
     Route: 048

REACTIONS (1)
  - Death [Fatal]

NARRATIVE: CASE EVENT DATE: 20210709
